FAERS Safety Report 21592874 (Version 3)
Quarter: 2023Q1

REPORT INFORMATION
  Report Type: Spontaneous
  Country: US (occurrence: US)
  Receive Date: 20221114
  Receipt Date: 20230111
  Transmission Date: 20230417
  Serious: No
  Sender: FDA-Public Use
  Company Number: US-AMGEN-USASP2022192763

PATIENT
  Age: 62 Year
  Sex: Female

DRUGS (1)
  1. REPATHA [Suspect]
     Active Substance: EVOLOCUMAB
     Indication: Hypercholesterolaemia
     Dosage: 420 MILLIGRAM, QMO
     Route: 058

REACTIONS (4)
  - Illness [Unknown]
  - Accidental exposure to product [Unknown]
  - Injection site haemorrhage [Unknown]
  - Injection site reaction [Unknown]

NARRATIVE: CASE EVENT DATE: 20221104
